FAERS Safety Report 12429957 (Version 1)
Quarter: 2016Q2

REPORT INFORMATION
  Report Type: Spontaneous
  Country: US (occurrence: US)
  Receive Date: 20160602
  Receipt Date: 20160602
  Transmission Date: 20160815
  Serious: No
  Sender: FDA-Public Use
  Company Number: US-KADMON PHARMACEUTICALS, LLC-KAD201512-004508

PATIENT
  Age: 59 Year
  Sex: Male
  Weight: 80.73 kg

DRUGS (6)
  1. CLONAZEPAM. [Concomitant]
     Active Substance: CLONAZEPAM
     Indication: AGITATION
  2. SOVALDI [Suspect]
     Active Substance: SOFOSBUVIR
     Indication: HEPATITIS C
     Dates: start: 20150903, end: 20151202
  3. RIBASPHERE [Suspect]
     Active Substance: RIBAVIRIN
     Indication: HEPATITIS C
     Dosage: THREE IN THE MORNING AND THREE IN THE EVENING; TOTAL DAILY DOSE: 1200 MG
     Route: 048
     Dates: start: 20150903, end: 20151202
  4. CLONAZEPAM. [Concomitant]
     Active Substance: CLONAZEPAM
     Indication: ANXIETY
  5. ASPIRIN. [Concomitant]
     Active Substance: ASPIRIN
     Indication: HEADACHE
  6. RIBASPHERE [Suspect]
     Active Substance: RIBAVIRIN
     Dosage: TWO CAPSULES IN THE MORNING AND TWO IN THE EVENING; TOTAL DAILY DOSE: 800 MG
     Route: 048
     Dates: start: 20150903, end: 20151202

REACTIONS (7)
  - Abdominal distension [Recovered/Resolved]
  - Headache [Recovering/Resolving]
  - Fatigue [Recovering/Resolving]
  - Depression [Recovering/Resolving]
  - Agitation [Recovering/Resolving]
  - Renal disorder [Recovered/Resolved]
  - Anxiety [Recovering/Resolving]

NARRATIVE: CASE EVENT DATE: 20151103
